FAERS Safety Report 25269734 (Version 4)
Quarter: 2025Q2

REPORT INFORMATION
  Report Type: Spontaneous
  Country: DE (occurrence: DE)
  Receive Date: 20250505
  Receipt Date: 20250519
  Transmission Date: 20250716
  Serious: Yes (Other)
  Sender: GLAXOSMITHKLINE
  Company Number: None

PATIENT

DRUGS (18)
  1. BENLYSTA [Suspect]
     Active Substance: BELIMUMAB
     Indication: Product used for unknown indication
     Route: 065
     Dates: start: 202201
  2. BENLYSTA [Suspect]
     Active Substance: BELIMUMAB
     Dosage: 200 MG, WE, 200 MG, QW, (BEFORE CAR-T CELL THERAPY)
     Route: 065
     Dates: start: 202401
  3. PREDNISOLONE [Suspect]
     Active Substance: PREDNISOLONE
     Indication: Pain
     Dosage: 17.5 MG, QD
     Route: 065
     Dates: start: 2019
  4. PREDNISOLONE [Suspect]
     Active Substance: PREDNISOLONE
     Route: 065
     Dates: start: 202112, end: 202201
  5. PREDNISOLONE [Suspect]
     Active Substance: PREDNISOLONE
     Dosage: 5 MG, QD, MORNING (BEFORE CAR-T CELL THERAPY)
     Route: 065
     Dates: start: 202401
  6. CANDESARTAN [Suspect]
     Active Substance: CANDESARTAN
     Indication: Product used for unknown indication
     Dosage: 32 MG, QD, 16 MG, BID, MORNING + EVENING, (BEFORE CAR-T CELL THERAPY)
     Route: 065
     Dates: start: 202401
  7. AMLODIPINE [Suspect]
     Active Substance: AMLODIPINE BESYLATE
     Indication: Product used for unknown indication
     Dosage: 5 MG, QD, MORNING, (BEFORE CAR-T CELL THERAPY)
     Route: 065
     Dates: start: 202401
  8. PANTOPRAZOLE [Suspect]
     Active Substance: PANTOPRAZOLE
     Indication: Product used for unknown indication
     Dosage: 20 MG, QD, MORNING (BEFORE CAR-T CELL THERAPY)
     Route: 065
     Dates: start: 202401
  9. PANTOPRAZOLE [Suspect]
     Active Substance: PANTOPRAZOLE
     Dosage: 40 MG, QD, MORNING (AFTER CAR-T CELL THERAPY)
     Route: 065
     Dates: start: 202409
  10. DAPAGLIFLOZIN [Suspect]
     Active Substance: DAPAGLIFLOZIN
     Indication: Product used for unknown indication
     Dosage: 10 MG, QD, MORNING, (BEFORE CAR-T CELL THERAPY)
     Route: 065
     Dates: start: 202401
  11. DAPAGLIFLOZIN [Suspect]
     Active Substance: DAPAGLIFLOZIN
     Dosage: 10 MG, QD, MORNING, (BEFORE CAR-T CELL THERAPY)
     Route: 065
     Dates: start: 202409
  12. CHOLECALCIFEROL [Suspect]
     Active Substance: CHOLECALCIFEROL
     Indication: Product used for unknown indication
     Dosage: 20000 IU, QD, MORNING (AFTER CAR T-CELL THERAPY)
     Route: 065
     Dates: start: 202409
  13. CHOLECALCIFEROL [Suspect]
     Active Substance: CHOLECALCIFEROL
     Indication: Product used for unknown indication
     Dosage: 20 MG, WE, MORNING, OILY SOLUTION, BEFORE CAR-T CELL THERAPY
     Route: 065
     Dates: start: 202401
  14. CYCLOSPORINE [Suspect]
     Active Substance: CYCLOSPORINE
     Indication: Product used for unknown indication
     Dosage: 100 MG, QD (50 MG, BID, MORNING + EVENING, (BEFORE CAR-T CELL THERAPY))
     Route: 065
     Dates: start: 202201
  15. CYCLOSPORINE [Suspect]
     Active Substance: CYCLOSPORINE
     Route: 065
     Dates: start: 202201
  16. FERRO-SANOL DUODENAL [Suspect]
     Active Substance: FERROUS GLYCINE SULFATE
     Indication: Product used for unknown indication
     Dosage: 100 MG, QD, MORNING (AFTER CAR T-CELL THERAPY)
     Route: 065
     Dates: start: 202409
  17. FOLIC ACID [Suspect]
     Active Substance: FOLIC ACID
     Indication: Product used for unknown indication
     Dosage: 5 MG, QD, MORNING, (AFTER CAR-T CELL THERAPY)
     Route: 065
     Dates: start: 202409
  18. MYCOPHENOLATE MOFETIL [Concomitant]
     Active Substance: MYCOPHENOLATE MOFETIL
     Indication: Product used for unknown indication
     Route: 065
     Dates: start: 202203, end: 202206

REACTIONS (9)
  - Nephrotic syndrome [Unknown]
  - Systemic lupus erythematosus [Unknown]
  - Lupus nephritis [Unknown]
  - Neutropenia [Recovered/Resolved]
  - Raynaud^s phenomenon [Unknown]
  - Vasculitis [Unknown]
  - Pain [Unknown]
  - Alopecia [Unknown]
  - Nausea [Unknown]

NARRATIVE: CASE EVENT DATE: 20211201
